FAERS Safety Report 24300799 (Version 1)
Quarter: 2024Q3

REPORT INFORMATION
  Report Type: Spontaneous
  Country: US (occurrence: US)
  Receive Date: 20240910
  Receipt Date: 20240910
  Transmission Date: 20241017
  Serious: Yes (Other)
  Sender: AMGEN
  Company Number: US-AMGEN-USASP2024177551

PATIENT

DRUGS (1)
  1. NPLATE [Suspect]
     Active Substance: ROMIPLOSTIM
     Indication: Product used for unknown indication
     Dosage: 250 MICROGRAM /0.72 MILLILITER
     Route: 065

REACTIONS (3)
  - Embolism [Unknown]
  - Myelofibrosis [Unknown]
  - Product label confusion [Unknown]

NARRATIVE: CASE EVENT DATE: 20240726
